FAERS Safety Report 10616848 (Version 1)
Quarter: 2014Q4

REPORT INFORMATION
  Report Type: Spontaneous
  Country: FR (occurrence: FR)
  Receive Date: 20141201
  Receipt Date: 20141201
  Transmission Date: 20150529
  Serious: Yes (Congenital Anomaly)
  Sender: FDA-Public Use
  Company Number: PHHY2014FR152173

PATIENT
  Age: 0 Day
  Sex: Male

DRUGS (3)
  1. TEGRETOL [Suspect]
     Active Substance: CARBAMAZEPINE
     Indication: EPILEPSY
     Dosage: MATERNAL DOSE 100 MG BID
     Route: 064
     Dates: end: 20140825
  2. FOLIC ACID. [Concomitant]
     Active Substance: FOLIC ACID
     Indication: PRODUCT USED FOR UNKNOWN INDICATION
     Dosage: UNK
     Route: 064
     Dates: end: 20140825
  3. LAMICTAL [Suspect]
     Active Substance: LAMOTRIGINE
     Indication: EPILEPSY
     Dosage: MATERNAL DOSE:250 MG BID
     Route: 064
     Dates: end: 20140825

REACTIONS (1)
  - Multiple congenital abnormalities [Unknown]

NARRATIVE: CASE EVENT DATE: 20140825
